FAERS Safety Report 9448294 (Version 1)
Quarter: 2013Q3

REPORT INFORMATION
  Report Type: Spontaneous
  Country: US (occurrence: US)
  Receive Date: 20130808
  Receipt Date: 20130808
  Transmission Date: 20140515
  Serious: Yes (Other)
  Sender: FDA-Public Use
  Company Number: US-COVIDIEN/TYCO HEALTHCARE/MALLINCKRODT-T201303876

PATIENT
  Age: 71 Year
  Sex: Male

DRUGS (2)
  1. OXYCODONE [Suspect]
     Indication: PAIN
     Dosage: 5 MG, TID
     Route: 048
     Dates: start: 2001
  2. MS CONTIN [Concomitant]
     Indication: INSOMNIA
     Dosage: UNK

REACTIONS (5)
  - Colon cancer [Not Recovered/Not Resolved]
  - Malignant melanoma [Not Recovered/Not Resolved]
  - Lymphoma [Recovered/Resolved]
  - Polyp [Recovered/Resolved]
  - Insomnia [Recovered/Resolved]
